FAERS Safety Report 10173058 (Version 1)
Quarter: 2014Q2

REPORT INFORMATION
  Report Type: Spontaneous
  Country: US (occurrence: US)
  Receive Date: 20140515
  Receipt Date: 20140515
  Transmission Date: 20141212
  Serious: Yes (Hospitalization)
  Sender: FDA-Public Use
  Company Number: US-BAYER-2014-070600

PATIENT
  Age: 22 Year
  Sex: Female
  Weight: 59.86 kg

DRUGS (4)
  1. YAZ [Suspect]
  2. TYLENOL [PARACETAMOL] [Concomitant]
  3. XANAX [Concomitant]
  4. OXYGEN [Concomitant]
     Route: 045

REACTIONS (1)
  - Pulmonary embolism [Recovering/Resolving]
